FAERS Safety Report 5768467-4 (Version None)
Quarter: 2008Q2

REPORT INFORMATION
  Report Type: 
  Country: None (occurrence: None)
  Receive Date: 20080610
  Receipt Date: 20080529
  Transmission Date: 20081010
  Serious: Yes (Death)
  Sender: FDA-Public Use
  Company Number: 2008AL006263

PATIENT
  Age: 86 Year
  Sex: Female

DRUGS (5)
  1. DICLOFENAC SODIUM [Suspect]
     Indication: OSTEOARTHRITIS
     Dosage: 75 MG; QD; PO
     Route: 048
  2. METOPROLOL [Concomitant]
  3. LEVOTHYROXINE SODIUM [Concomitant]
  4. BETAMETHASONE [Concomitant]
  5. OLANZAPINE [Concomitant]

REACTIONS (2)
  - GASTROINTESTINAL HAEMORRHAGE [None]
  - RENAL FAILURE [None]
